FAERS Safety Report 17923954 (Version 1)
Quarter: 2020Q2

REPORT INFORMATION
  Report Type: Spontaneous
  Country: US (occurrence: US)
  Receive Date: 20200622
  Receipt Date: 20200622
  Transmission Date: 20200714
  Serious: No
  Sender: FDA-Public Use
  Company Number: None

PATIENT
  Age: 67 Year
  Sex: Female
  Weight: 76.5 kg

DRUGS (8)
  1. DEFINITY [Suspect]
     Active Substance: PERFLUTREN
     Indication: STRESS ECHOCARDIOGRAM
     Dosage: ?          OTHER FREQUENCY:2 DOSES;?
     Route: 040
  2. ASPIRIN 81MG [Concomitant]
     Active Substance: ASPIRIN
  3. SENNA [Concomitant]
     Active Substance: SENNA LEAF\SENNOSIDES\SENNOSIDES A AND B
  4. COLACE [Concomitant]
     Active Substance: DOCUSATE SODIUM
  5. HCTZ [Concomitant]
     Active Substance: HYDROCHLOROTHIAZIDE
  6. VIT D [Concomitant]
     Active Substance: VITAMIN D NOS
  7. PROVASTATIN [Concomitant]
  8. RANITIDINE. [Concomitant]
     Active Substance: RANITIDINE

REACTIONS (3)
  - Back pain [None]
  - Infusion related reaction [None]
  - Headache [None]

NARRATIVE: CASE EVENT DATE: 20200622
